FAERS Safety Report 7488795-4 (Version None)
Quarter: 2011Q1

REPORT INFORMATION
  Report Type: 
  Country: None (occurrence: None)
  Receive Date: 20110311
  Receipt Date: 20110311
  Transmission Date: 20110831
  Serious: Yes (Other)
  Sender: FDA-Public Use
  Company Number: 010

PATIENT
  Sex: Female

DRUGS (1)
  1. BACITRACIN ZINC AND POLYMYXIN B SULFATE [Suspect]
     Indication: LACERATION
     Dosage: INTRANASAL
     Route: 045
     Dates: start: 20100726

REACTIONS (1)
  - NASAL CONGESTION [None]
